FAERS Safety Report 11855174 (Version 1)
Quarter: 2015Q4

REPORT INFORMATION
  Report Type: Spontaneous
  Country: GB (occurrence: GB)
  Receive Date: 20151221
  Receipt Date: 20151221
  Transmission Date: 20160305
  Serious: Yes (Disabling)
  Sender: FDA-Public Use
  Company Number: GB-WATSON-2015-14690

PATIENT
  Age: 88 Year
  Sex: Female
  Weight: 52.61 kg

DRUGS (2)
  1. ADCAL D3 [Concomitant]
     Active Substance: CALCIUM CARBONATE\CHOLECALCIFEROL
     Indication: PRODUCT USED FOR UNKNOWN INDICATION
     Dosage: UNK
     Route: 065
  2. METRONIDAZOLE (UNKNOWN) [Suspect]
     Active Substance: METRONIDAZOLE
     Indication: TOOTH EXTRACTION
     Dosage: 400 MG, TID
     Route: 048
     Dates: start: 20150616, end: 20150616

REACTIONS (4)
  - Fatigue [Recovered/Resolved with Sequelae]
  - Myalgia [Recovered/Resolved with Sequelae]
  - Feeling cold [Recovered/Resolved with Sequelae]
  - Dysstasia [Recovered/Resolved with Sequelae]

NARRATIVE: CASE EVENT DATE: 20150616
